FAERS Safety Report 9424339 (Version 1)
Quarter: 2013Q3

REPORT INFORMATION
  Report Type: Spontaneous
  Country: FR (occurrence: None)
  Receive Date: 20130724
  Receipt Date: 20130724
  Transmission Date: 20140515
  Serious: Yes (Hospitalization)
  Sender: FDA-Public Use
  Company Number: ACO_37510_2013

PATIENT
  Age: 58 Year
  Sex: Male

DRUGS (3)
  1. FAMPYRA (DALFAMPRIDINE) TABLET, 10MG [Suspect]
     Indication: GAIT DISTURBANCE
     Dates: start: 2013, end: 2013
  2. LYRICA (PREGABALIN) [Concomitant]
  3. SPASFON (PHLOROGLUCINOL, TRIMETHYLPHLOROGLUCINOL) [Concomitant]

REACTIONS (8)
  - Urinary retention [None]
  - Pollakiuria [None]
  - Abdominal pain [None]
  - Renal failure [None]
  - Left ventricular hypertrophy [None]
  - Pyramidal tract syndrome [None]
  - Dysarthria [None]
  - Ophthalmoplegia [None]
